FAERS Safety Report 5406687-9 (Version None)
Quarter: 2007Q3

REPORT INFORMATION
  Report Type: 
  Country: None (occurrence: None)
  Receive Date: 20070803
  Receipt Date: 20070803
  Transmission Date: 20080115
  Serious: Yes (Hospitalization)
  Sender: FDA-Public Use
  Company Number: None

PATIENT
  Sex: Female
  Weight: 64.5 kg

DRUGS (2)
  1. CISPLATIN [Suspect]
     Indication: GLOTTIS CARCINOMA
     Dosage: 100MG/M2 Q 3WKS IV
     Route: 042
     Dates: start: 20070731
  2. CETUXIMAB [Suspect]
     Indication: GLOTTIS CARCINOMA
     Dosage: 250MG/M2 QW IV
     Route: 042
     Dates: start: 20070731

REACTIONS (3)
  - BLOOD CREATININE INCREASED [None]
  - DRUG ADMINISTRATION ERROR [None]
  - FATIGUE [None]
